FAERS Safety Report 23792649 (Version 1)
Quarter: 2024Q2

REPORT INFORMATION
  Report Type: Spontaneous
  Country: US (occurrence: US)
  Receive Date: 20240429
  Receipt Date: 20240429
  Transmission Date: 20240716
  Serious: Yes (Other)
  Sender: FDA-Public Use
  Company Number: US-002147023-NVSC2024US085815

PATIENT
  Age: 34 Year
  Sex: Female

DRUGS (1)
  1. KESIMPTA [Suspect]
     Active Substance: OFATUMUMAB
     Indication: Product used for unknown indication
     Dosage: UNK
     Route: 065
     Dates: start: 202312

REACTIONS (10)
  - Optic neuritis [Unknown]
  - Blindness [Unknown]
  - Dysarthria [Unknown]
  - Dysgraphia [Unknown]
  - Asthenia [Unknown]
  - Band sensation [Unknown]
  - Paraesthesia [Unknown]
  - Limb discomfort [Unknown]
  - Aggression [Unknown]
  - Grief reaction [Unknown]
